FAERS Safety Report 8113169-2 (Version None)
Quarter: 2012Q1

REPORT INFORMATION
  Report Type: 
  Country: None (occurrence: None)
  Receive Date: 20120203
  Receipt Date: 20120124
  Transmission Date: 20120608
  Serious: Yes (Other)
  Sender: FDA-Public Use
  Company Number: PHEH2012US001227

PATIENT
  Age: 79 Year
  Sex: Female

DRUGS (10)
  1. VITAMIN B NOS [Concomitant]
     Dosage: UNK UKN, UNK
  2. LABETALOL HCL [Concomitant]
     Dosage: 400 MG, 2 PER DAY
  3. OMEPRAZOLE [Concomitant]
     Indication: GASTRIC DISORDER
     Dosage: UNK UKN, UNK
  4. NITROGLYCERIN [Concomitant]
     Dosage: 6.5 UKN, UNK
  5. ASPIRIN [Concomitant]
     Dosage: 325 MG, DAILY
  6. VITAMIN D [Concomitant]
     Dosage: UNK UKN, UNK
  7. DIOVAN [Suspect]
     Dosage: 320 MG, QD
     Dates: start: 20070101
  8. CALCIUM [Concomitant]
     Dosage: UNK UKN, UNK
  9. MAGNESIUM CITRATE [Concomitant]
     Dosage: UNK UKN, UNK
  10. SYNTHROID [Concomitant]
     Dosage: 112 UKN, DAILY

REACTIONS (5)
  - MEMORY IMPAIRMENT [None]
  - MUSCULOSKELETAL PAIN [None]
  - ROAD TRAFFIC ACCIDENT [None]
  - MUSCLE SPASMS [None]
  - TRANSIENT ISCHAEMIC ATTACK [None]
